FAERS Safety Report 5306533-8 (Version None)
Quarter: 2007Q2

REPORT INFORMATION
  Report Type: 
  Country: None (occurrence: None)
  Receive Date: 20070424
  Receipt Date: 20070412
  Transmission Date: 20071010
  Serious: Yes (Other)
  Sender: FDA-Public Use
  Company Number: US-PFIZER INC-2007030814

PATIENT
  Sex: Female
  Weight: 55.8 kg

DRUGS (5)
  1. REVATIO [Suspect]
     Indication: PULMONARY HYPERTENSION
  2. DIURETICS [Concomitant]
  3. ALL OTHER THERAPEUTIC PRODUCTS [Concomitant]
  4. ANALGESICS [Concomitant]
  5. ACETYLSALICYLIC ACID SRT [Concomitant]

REACTIONS (10)
  - ASTHENIA [None]
  - CARDIAC FAILURE [None]
  - DYSPNOEA [None]
  - EXTRASYSTOLES [None]
  - GENERAL PHYSICAL HEALTH DETERIORATION [None]
  - HYPERVENTILATION [None]
  - PALPITATIONS [None]
  - RESPIRATORY DISORDER [None]
  - UNEVALUABLE EVENT [None]
  - VISION BLURRED [None]
